FAERS Safety Report 4949843-6 (Version None)
Quarter: 2006Q1

REPORT INFORMATION
  Report Type: 
  Country: None (occurrence: None)
  Receive Date: 20060321
  Receipt Date: 20060314
  Transmission Date: 20060701
  Serious: Yes (Hospitalization, Other)
  Sender: FDA-Public Use
  Company Number: US-MERCK-0603USA02474

PATIENT
  Age: 70 Year
  Sex: Female
  Weight: 86 kg

DRUGS (5)
  1. VIOXX [Suspect]
     Indication: PAIN
     Route: 048
     Dates: start: 20010201, end: 20040301
  2. VIOXX [Suspect]
     Indication: ARTHRITIS
     Route: 048
     Dates: start: 20010201, end: 20040301
  3. ASPIRIN [Concomitant]
     Indication: MYOCARDIAL INFARCTION
     Route: 065
     Dates: start: 20000101
  4. ASPIRIN [Concomitant]
     Indication: RHEUMATOID ARTHRITIS
     Route: 065
     Dates: start: 20000101
  5. PREMARIN [Concomitant]
     Indication: MENOPAUSE
     Route: 065
     Dates: start: 20000112, end: 20021205

REACTIONS (10)
  - ANXIETY [None]
  - ARTERIOSCLEROSIS [None]
  - BALANCE DISORDER [None]
  - CARDIAC DISORDER [None]
  - CEREBROVASCULAR ACCIDENT [None]
  - HIP FRACTURE [None]
  - MYOCARDIAL INFARCTION [None]
  - RENAL DISORDER [None]
  - TACHYARRHYTHMIA [None]
  - WRIST FRACTURE [None]
